FAERS Safety Report 8981726 (Version 1)
Quarter: 2012Q4

REPORT INFORMATION
  Report Type: 
  Country: AT (occurrence: AT)
  Receive Date: 20121223
  Receipt Date: 20121223
  Transmission Date: 20130627
  Serious: Yes (Hospitalization)
  Sender: FDA-Public Use
  Company Number: AT-009507513-1212AUT008560

PATIENT
  Age: 29 Year
  Sex: Female

DRUGS (4)
  1. IMPLANON NXT [Suspect]
     Indication: CONTRACEPTION
     Dosage: UNK
     Dates: start: 20111201, end: 201206
  2. GESTAGENO [Concomitant]
     Indication: MENSTRUATION IRREGULAR
     Dosage: UNK, Once, injection
     Dates: start: 20120105, end: 20120105
  3. GESTAGENO [Concomitant]
     Dosage: UNK, Once, injection
     Dates: start: 20120227, end: 20120227
  4. ASIAN WATER PLANTAIN [Concomitant]
     Indication: CONTRACEPTION
     Dosage: UNK
     Route: 048
     Dates: start: 201203, end: 20120605

REACTIONS (6)
  - Pulmonary embolism [Recovered/Resolved]
  - Dyspnoea [Unknown]
  - Thrombosis [Recovered/Resolved]
  - Menstruation irregular [Not Recovered/Not Resolved]
  - Swelling [Unknown]
  - Pain in extremity [Unknown]
